FAERS Safety Report 8184437-3 (Version None)
Quarter: 2012Q1

REPORT INFORMATION
  Report Type: 
  Country: None (occurrence: None)
  Receive Date: 20120305
  Receipt Date: 20120223
  Transmission Date: 20120608
  Serious: Yes (Other)
  Sender: FDA-Public Use
  Company Number: US-JNJFOC-20120212873

PATIENT
  Age: 21 Year
  Sex: Female
  Weight: 74.84 kg

DRUGS (3)
  1. ACETAMINOPHEN [Suspect]
     Indication: OROPHARYNGEAL PAIN
     Route: 048
     Dates: start: 20120223, end: 20120223
  2. ACETAMINOPHEN [Suspect]
     Indication: NASAL CONGESTION
     Route: 048
     Dates: start: 20120223, end: 20120223
  3. ACETAMINOPHEN [Suspect]
     Indication: COUGH
     Route: 048
     Dates: start: 20120223, end: 20120223

REACTIONS (3)
  - DRUG INEFFECTIVE [None]
  - PNEUMONIA [None]
  - PRODUCT QUALITY ISSUE [None]
